FAERS Safety Report 8602906 (Version 5)
Quarter: 2013Q1

REPORT INFORMATION
  Report Type: Report from Study
  Country: CA (occurrence: CA)
  Receive Date: 20120607
  Receipt Date: 20130228
  Transmission Date: 20140127
  Serious: Yes (Hospitalization)
  Sender: FDA-Public Use
  Company Number: PHHO2012CA008390

PATIENT
  Age: 68 Year
  Sex: Male
  Weight: 101.5 kg

DRUGS (3)
  1. CERTICAN [Suspect]
     Indication: RENAL TRANSPLANT
     Dosage: 1 MG, BID
     Route: 048
     Dates: start: 20110727, end: 20120705
  2. PROGRAF [Concomitant]
     Indication: RENAL TRANSPLANT
     Dosage: 1 MG, BID
     Dates: start: 20110727
  3. PREDNISONE [Concomitant]
     Indication: RENAL TRANSPLANT
     Dosage: 7.5 MG, QD
     Dates: start: 20110726

REACTIONS (1)
  - Pulmonary oedema [Recovered/Resolved]
